FAERS Safety Report 19706002 (Version 1)
Quarter: 2021Q3

REPORT INFORMATION
  Report Type: Spontaneous
  Country: US (occurrence: US)
  Receive Date: 20210817
  Receipt Date: 20210817
  Transmission Date: 20211014
  Serious: Yes (Other)
  Sender: FDA-Public Use
  Company Number: US-SUN PHARMACEUTICAL INDUSTRIES LTD-2021R1-307888

PATIENT
  Age: 64 Year
  Sex: Male

DRUGS (1)
  1. DULOXETINE. [Suspect]
     Active Substance: DULOXETINE
     Indication: SCOLIOSIS
     Dosage: UNK
     Route: 065

REACTIONS (1)
  - Treatment failure [Unknown]
